FAERS Safety Report 6477716-9 (Version None)
Quarter: 2009Q4

REPORT INFORMATION
  Report Type: 
  Country: None (occurrence: None)
  Receive Date: 20091207
  Receipt Date: 20091127
  Transmission Date: 20100525
  Serious: Yes (Disabling)
  Sender: FDA-Public Use
  Company Number: FR-PFIZER INC-2009284112

PATIENT
  Age: 49 Year
  Sex: Female
  Weight: 109.75 kg

DRUGS (5)
  1. TAHOR [Suspect]
     Indication: SUBCLAVIAN ARTERY STENOSIS
     Dosage: 10 MG, PER DAY
     Route: 048
     Dates: start: 20050101, end: 20090919
  2. DI-ANTALVIC [Concomitant]
     Indication: PAIN
  3. MOPRAL [Concomitant]
  4. APROVEL [Concomitant]
     Indication: HYPERTENSION
     Dosage: 75 MG, 1X/DAY
     Route: 048
     Dates: start: 20050101
  5. ASPIRIN [Concomitant]
     Indication: SUBCLAVIAN ARTERY STENOSIS
     Dosage: 150 MG, 1X/DAY
     Route: 048
     Dates: start: 20050101

REACTIONS (4)
  - BLOOD CREATINE PHOSPHOKINASE INCREASED [None]
  - GAIT DISTURBANCE [None]
  - MUSCULAR WEAKNESS [None]
  - MYALGIA [None]
